FAERS Safety Report 18324055 (Version 2)
Quarter: 2020Q4

REPORT INFORMATION
  Report Type: Report from Study
  Country: MX (occurrence: MX)
  Receive Date: 20200928
  Receipt Date: 20201014
  Transmission Date: 20210113
  Serious: Yes (Other)
  Sender: FDA-Public Use
  Company Number: NVSC2020MX262235

PATIENT
  Age: 72 Year
  Sex: Female
  Weight: 50 kg

DRUGS (2)
  1. GALVUS MET [Suspect]
     Active Substance: METFORMIN HYDROCHLORIDE\VILDAGLIPTIN
     Indication: DIABETES MELLITUS
     Dosage: 1 DF (50/500) (2 YEARS AGO)
     Route: 048
     Dates: end: 20200420
  2. GALVUS MET [Suspect]
     Active Substance: METFORMIN HYDROCHLORIDE\VILDAGLIPTIN
     Dosage: 1 DF, BID (50/500 MG)
     Route: 048
     Dates: start: 20200920

REACTIONS (8)
  - Pyrexia [Recovering/Resolving]
  - Viral infection [Unknown]
  - Fatigue [Recovering/Resolving]
  - Blood glucose increased [Not Recovered/Not Resolved]
  - Cough [Recovering/Resolving]
  - COVID-19 [Recovering/Resolving]
  - Illness [Unknown]
  - Drug ineffective [Unknown]

NARRATIVE: CASE EVENT DATE: 202001
